FAERS Safety Report 5570752-6 (Version None)
Quarter: 2007Q4

REPORT INFORMATION
  Report Type: 
  Country: None (occurrence: None)
  Receive Date: 20071221
  Receipt Date: 20070916
  Transmission Date: 20080405
  Serious: No
  Sender: FDA-Public Use
  Company Number: US-BAUSCH-2007BL003374

PATIENT
  Age: 56 Year
  Sex: Female

DRUGS (2)
  1. ZYLET [Suspect]
     Indication: EYE ALLERGY
     Route: 047
     Dates: start: 20070913
  2. LISINOPRIL [Concomitant]
     Indication: HYPERTENSION

REACTIONS (2)
  - INCREASED APPETITE [None]
  - RESTLESSNESS [None]
